FAERS Safety Report 4928159-8 (Version None)
Quarter: 2006Q1

REPORT INFORMATION
  Report Type: 
  Country: None (occurrence: None)
  Receive Date: 20060223
  Receipt Date: 20060210
  Transmission Date: 20060701
  Serious: Yes (Hospitalization)
  Sender: FDA-Public Use
  Company Number: 2006JP000203

PATIENT
  Age: 71 Year
  Sex: Male

DRUGS (9)
  1. TACROLIMUS CAPSULES (TACROLIMUS CAPSULES) CAPSULE [Suspect]
     Indication: RHEUMATOID ARTHRITIS
     Dosage: 1.5 MG, ORAL
     Route: 048
     Dates: start: 20050726
  2. PREDNISOLONE [Concomitant]
  3. RHEUMATREX [Concomitant]
  4. VOLTAREN [Concomitant]
  5. APLACE (TROXIPIDE) [Concomitant]
  6. GASTER D [Concomitant]
  7. DIOVAN [Concomitant]
  8. PERSANTIN [Concomitant]
  9. FOLIC ACID [Concomitant]

REACTIONS (4)
  - IMMUNOSUPPRESSANT DRUG LEVEL DECREASED [None]
  - INFECTION [None]
  - PLEURISY [None]
  - PNEUMONIA [None]
